FAERS Safety Report 10230132 (Version 1)
Quarter: 2014Q2

REPORT INFORMATION
  Report Type: Spontaneous
  Country: US (occurrence: None)
  Receive Date: 20140610
  Receipt Date: 20140610
  Transmission Date: 20141212
  Serious: No
  Sender: FDA-Public Use
  Company Number: None

PATIENT
  Age: 59 Year
  Sex: Female
  Weight: 122.47 kg

DRUGS (2)
  1. HYDROCORTISONE [Suspect]
     Indication: ADDISON^S DISEASE
     Route: 048
     Dates: start: 20130902, end: 20140607
  2. HYDROCORTISONE [Suspect]
     Indication: HYPOPITUITARISM
     Route: 048
     Dates: start: 20130902, end: 20140607

REACTIONS (5)
  - Headache [None]
  - Asthenia [None]
  - Weight increased [None]
  - Nausea [None]
  - Product substitution issue [None]
